FAERS Safety Report 18812567 (Version 1)
Quarter: 2021Q1

REPORT INFORMATION
  Report Type: Spontaneous
  Country: DE (occurrence: DE)
  Receive Date: 20210130
  Receipt Date: 20210130
  Transmission Date: 20210419
  Serious: Yes (Hospitalization)
  Sender: FDA-Public Use
  Company Number: NVSC2021DE020310

PATIENT
  Age: 5 Year

DRUGS (6)
  1. CELLCEPT [Suspect]
     Active Substance: MYCOPHENOLATE MOFETIL\MYCOPHENOLATE MOFETIL HYDROCHLORIDE
     Indication: RENAL FAILURE
     Dosage: 400 MG (2 TIMES 400 MG, IN COMBINATION WITH METHYLPREDNISOLON AND SOLIRIS)
     Route: 042
     Dates: start: 202011
  2. CELLCEPT [Suspect]
     Active Substance: MYCOPHENOLATE MOFETIL\MYCOPHENOLATE MOFETIL HYDROCHLORIDE
     Indication: ATYPICAL HAEMOLYTIC URAEMIC SYNDROME
  3. METHYLPREDNISOLONE. [Suspect]
     Active Substance: METHYLPREDNISOLONE
     Indication: RENAL FAILURE
     Dosage: UNK (IN COMBINATION WITH CELLCEPT AND SOLIRIS)
     Route: 065
     Dates: start: 202011
  4. SOLIRIS [Suspect]
     Active Substance: ECULIZUMAB
     Indication: RENAL FAILURE
     Dosage: UNK (IN COMBINATION WITH CELLCEPT AND METHYLPREDNISOLON)
     Route: 065
     Dates: start: 202011
  5. SOLIRIS [Suspect]
     Active Substance: ECULIZUMAB
     Indication: ATYPICAL HAEMOLYTIC URAEMIC SYNDROME
  6. METHYLPREDNISOLONE. [Suspect]
     Active Substance: METHYLPREDNISOLONE
     Indication: ATYPICAL HAEMOLYTIC URAEMIC SYNDROME

REACTIONS (3)
  - Proteinuria [Not Recovered/Not Resolved]
  - Intentional product use issue [Unknown]
  - Off label use [Unknown]
